FAERS Safety Report 12137443 (Version 3)
Quarter: 2016Q2

REPORT INFORMATION
  Report Type: Spontaneous
  Country: BR (occurrence: BR)
  Receive Date: 20160302
  Receipt Date: 20160527
  Transmission Date: 20160815
  Serious: Yes (Hospitalization, Other)
  Sender: FDA-Public Use
  Company Number: BR-PFIZER INC-2016118763

PATIENT
  Age: 64 Year
  Sex: Male
  Weight: 74 kg

DRUGS (1)
  1. SUTENT [Suspect]
     Active Substance: SUNITINIB MALATE
     Indication: METASTATIC RENAL CELL CARCINOMA
     Dosage: 50 MG, CYCLE 2X1
     Route: 048
     Dates: start: 20110515

REACTIONS (3)
  - Weight decreased [Unknown]
  - Skin fissures [Unknown]
  - Diverticulitis [Unknown]

NARRATIVE: CASE EVENT DATE: 201601
